FAERS Safety Report 8001293-4 (Version None)
Quarter: 2011Q4

REPORT INFORMATION
  Report Type: 
  Country: None (occurrence: None)
  Receive Date: 20111123
  Receipt Date: 20110913
  Transmission Date: 20120403
  Serious: No
  Sender: FDA-Public Use
  Company Number: 336582

PATIENT
  Age: 52 Year
  Sex: Female

DRUGS (1)
  1. VICTOZA [Suspect]
     Indication: OBESITY
     Dosage: 0.6 MG, QD, SUBCUTANEOUS
     Route: 058

REACTIONS (5)
  - LYMPHADENOPATHY [None]
  - PAIN [None]
  - OROPHARYNGEAL PAIN [None]
  - HYPERSENSITIVITY [None]
  - HEADACHE [None]
